FAERS Safety Report 4757782-9 (Version None)
Quarter: 2005Q3

REPORT INFORMATION
  Report Type: 
  Country: None (occurrence: None)
  Receive Date: 20050826
  Receipt Date: 20050721
  Transmission Date: 20060218
  Serious: No
  Sender: FDA-Public Use
  Company Number: WAES 0507USA03310

PATIENT
  Sex: Male

DRUGS (3)
  1. ZETIA [Suspect]
     Dosage: 10 MG/DAILY/PO
     Route: 048
     Dates: start: 20050711
  2. LIPITOR [Concomitant]
  3. LOTREL [Concomitant]

REACTIONS (1)
  - RASH [None]
